FAERS Safety Report 11436059 (Version 1)
Quarter: 2015Q3

REPORT INFORMATION
  Report Type: Spontaneous
  Country: US (occurrence: US)
  Receive Date: 20150821
  Receipt Date: 20150821
  Transmission Date: 20151125
  Serious: No
  Sender: FDA-Public Use
  Company Number: US-ELI_LILLY_AND_COMPANY-US201401009154

PATIENT
  Sex: Male
  Weight: 108.84 kg

DRUGS (1)
  1. CIALIS [Suspect]
     Active Substance: TADALAFIL
     Indication: ERECTILE DYSFUNCTION
     Dosage: 2.5 MG, QD
     Route: 065
     Dates: start: 20140108, end: 20140208

REACTIONS (4)
  - Feeling abnormal [Not Recovered/Not Resolved]
  - Drug ineffective [Not Recovered/Not Resolved]
  - Chest discomfort [Not Recovered/Not Resolved]
  - Nasal congestion [Not Recovered/Not Resolved]
